FAERS Safety Report 19738238 (Version 3)
Quarter: 2022Q2

REPORT INFORMATION
  Report Type: Spontaneous
  Country: IT (occurrence: IT)
  Receive Date: 20210823
  Receipt Date: 20220419
  Transmission Date: 20220720
  Serious: Yes (Other)
  Sender: FDA-Public Use
  Company Number: IT-VIIV HEALTHCARE LIMITED-IT2021GSK056175

PATIENT
  Age: 45 Year
  Sex: Female

DRUGS (20)
  1. LAMIVUDINE [Suspect]
     Active Substance: LAMIVUDINE
     Indication: HIV infection
     Dosage: UNK
  2. LAMIVUDINE [Suspect]
     Active Substance: LAMIVUDINE
     Dosage: UNK
  3. LAMIVUDINE [Suspect]
     Active Substance: LAMIVUDINE
     Dosage: UNK
  4. TENOFOVIR DISOPROXIL [Suspect]
     Active Substance: TENOFOVIR DISOPROXIL
     Indication: HIV infection
     Dosage: UNK
  5. TENOFOVIR DISOPROXIL [Suspect]
     Active Substance: TENOFOVIR DISOPROXIL
     Dosage: UNK
  6. TENOFOVIR DISOPROXIL [Suspect]
     Active Substance: TENOFOVIR DISOPROXIL
     Dosage: UNK
  7. RITONAVIR [Suspect]
     Active Substance: RITONAVIR
     Indication: HIV infection
     Dosage: 2 DOSAGE FORM, QD
  8. RITONAVIR [Suspect]
     Active Substance: RITONAVIR
     Dosage: 2 DOSAGE FORM, QD
  9. RITONAVIR [Suspect]
     Active Substance: RITONAVIR
     Dosage: 2 DOSAGE FORM, QD
  10. DARUNAVIR [Suspect]
     Active Substance: DARUNAVIR
     Indication: HIV infection
     Dosage: 2 DOSAGE FORM, QD
  11. DARUNAVIR [Suspect]
     Active Substance: DARUNAVIR
     Dosage: 2 DOSAGE FORM, QD
  12. EMTRICITABINE [Suspect]
     Active Substance: EMTRICITABINE
     Indication: HIV infection
     Dosage: UNK
  13. RALTEGRAVIR [Suspect]
     Active Substance: RALTEGRAVIR
     Indication: HIV infection
     Dosage: UNK
  14. DARUNAVIR\RITONAVIR [Suspect]
     Active Substance: DARUNAVIR\RITONAVIR
     Indication: HIV infection
     Dosage: UNK UNK, BID
  15. DARUNAVIR\RITONAVIR [Suspect]
     Active Substance: DARUNAVIR\RITONAVIR
     Dosage: UNK UNK, BID
  16. ZIDOVUDINE [Suspect]
     Active Substance: ZIDOVUDINE
     Indication: HIV infection
     Dosage: UNK
  17. ZIDOVUDINE [Suspect]
     Active Substance: ZIDOVUDINE
     Dosage: UNK
  18. ZIDOVUDINE [Suspect]
     Active Substance: ZIDOVUDINE
     Dosage: UNK
  19. DOLUTEGRAVIR [Suspect]
     Active Substance: DOLUTEGRAVIR
     Indication: HIV infection
     Dosage: UNK
  20. MARAVIROC [Suspect]
     Active Substance: MARAVIROC
     Indication: HIV infection
     Dosage: UNK

REACTIONS (10)
  - Brain oedema [Recovered/Resolved]
  - CSF HIV escape syndrome [Recovered/Resolved]
  - Peripheral venous disease [Recovered/Resolved]
  - Disease recurrence [Recovered/Resolved]
  - White matter lesion [Recovered/Resolved]
  - Nervous system disorder [Unknown]
  - Virologic failure [Unknown]
  - Cognitive disorder [Recovered/Resolved]
  - Headache [Recovered/Resolved]
  - Treatment noncompliance [Unknown]
